FAERS Safety Report 16837287 (Version 1)
Quarter: 2019Q3

REPORT INFORMATION
  Report Type: Spontaneous
  Country: JP (occurrence: JP)
  Receive Date: 20190923
  Receipt Date: 20190923
  Transmission Date: 20191005
  Serious: Yes (Hospitalization)
  Sender: FDA-Public Use
  Company Number: JP-ROCHE-2413502

PATIENT
  Age: 13 Year
  Sex: Male

DRUGS (2)
  1. SOMATROPIN. [Suspect]
     Active Substance: SOMATROPIN
     Indication: DWARFISM
     Dosage: DOSE: 0.5 U/KG/WEEK
     Route: 065
  2. SOMATROPIN. [Suspect]
     Active Substance: SOMATROPIN
     Indication: RADICULOPATHY

REACTIONS (3)
  - Gait inability [Recovered/Resolved]
  - Muscular weakness [Recovered/Resolved]
  - Dysphagia [Recovered/Resolved]

NARRATIVE: CASE EVENT DATE: 19950817
